FAERS Safety Report 24131743 (Version 1)
Quarter: 2024Q3

REPORT INFORMATION
  Report Type: Spontaneous
  Country: US (occurrence: None)
  Receive Date: 20240723
  Receipt Date: 20240723
  Transmission Date: 20241016
  Serious: Yes (Death)
  Sender: Public
  Company Number: None

PATIENT
  Age: 59 Year
  Sex: Male

DRUGS (9)
  1. SOFOSBUVIR\VELPATASVIR [Suspect]
     Active Substance: SOFOSBUVIR\VELPATASVIR
     Indication: Hepatitis C
     Dosage: 1 DAILY ORAL?
     Route: 048
     Dates: start: 20240502, end: 20240606
  2. AMLODIPINE [Concomitant]
  3. ATORVASTATIN [Concomitant]
  4. CARVEDILOL [Concomitant]
     Active Substance: CARVEDILOL
  5. CLOPIDOGREL [Concomitant]
  6. ELIQUIS [Concomitant]
     Active Substance: APIXABAN
  7. MEGESTROL ACETATE [Concomitant]
     Active Substance: MEGESTROL ACETATE
  8. NALOXONE [Concomitant]
  9. OXYCODONE [Concomitant]

REACTIONS (1)
  - Death [None]

NARRATIVE: CASE EVENT DATE: 20240626
